FAERS Safety Report 7202865-7 (Version None)
Quarter: 2010Q4

REPORT INFORMATION
  Report Type: 
  Country: None (occurrence: None)
  Receive Date: 20101229
  Receipt Date: 20101220
  Transmission Date: 20110411
  Serious: Yes (Hospitalization, Other)
  Sender: FDA-Public Use
  Company Number: US-TEVA-260502USA

PATIENT
  Age: 20 Year
  Sex: Male

DRUGS (4)
  1. CEFTRIAXONE SODIUM FOR INJECTION USP,10G/100ML [Suspect]
     Indication: TENOSYNOVITIS
     Dosage: 1 DOSE
  2. DOXYCYCLINE [Suspect]
     Indication: TENOSYNOVITIS
  3. VANCOMYCIN [Suspect]
     Indication: TENOSYNOVITIS
     Dosage: 1 DOSE
  4. BACTRIM [Suspect]
     Indication: TENOSYNOVITIS

REACTIONS (2)
  - DRUG RASH WITH EOSINOPHILIA AND SYSTEMIC SYMPTOMS [None]
  - HUMAN HERPESVIRUS 6 INFECTION [None]
